FAERS Safety Report 11617290 (Version 1)
Quarter: 2015Q4

REPORT INFORMATION
  Report Type: Spontaneous
  Country: MX (occurrence: MX)
  Receive Date: 20151009
  Receipt Date: 20151009
  Transmission Date: 20160304
  Serious: Yes (Death, Other)
  Sender: FDA-Public Use
  Company Number: MX-UCBSA-2015032101

PATIENT
  Age: 16 Year
  Sex: Male
  Weight: 28 kg

DRUGS (3)
  1. VIMPAT [Suspect]
     Active Substance: LACOSAMIDE
     Indication: LENNOX-GASTAUT SYNDROME
     Dosage: 200 MG, ONCE DAILY (100 MG 2 TABLETS /24 HRS)
     Route: 048
     Dates: start: 20150616
  2. VIMPAT [Suspect]
     Active Substance: LACOSAMIDE
     Indication: OFF LABEL USE
  3. LEVETIRACETAM. [Concomitant]
     Active Substance: LEVETIRACETAM
     Indication: PRODUCT USED FOR UNKNOWN INDICATION
     Dosage: 3G /DAILY

REACTIONS (2)
  - Respiratory arrest [Fatal]
  - Off label use [Unknown]

NARRATIVE: CASE EVENT DATE: 20150616
